FAERS Safety Report 4903233-0 (Version None)
Quarter: 2006Q1

REPORT INFORMATION
  Report Type: 
  Country: None (occurrence: None)
  Receive Date: 20060113
  Receipt Date: 20041216
  Transmission Date: 20060701
  Serious: Yes (Hospitalization, Other)
  Sender: FDA-Public Use
  Company Number: HQWYE056417DEC04

PATIENT
  Age: 61 Year
  Sex: Female
  Weight: 99.88 kg

DRUGS (4)
  1. PREMPRO [Suspect]
     Indication: HORMONE REPLACEMENT THERAPY
     Dates: start: 19970101
  2. ASPIRIN [Concomitant]
  3. LIPITOR [Concomitant]
  4. ZOCOR [Concomitant]

REACTIONS (1)
  - BREAST CANCER [None]
